FAERS Safety Report 5639524-8 (Version None)
Quarter: 2008Q1

REPORT INFORMATION
  Report Type: 
  Country: None (occurrence: None)
  Receive Date: 20080222
  Receipt Date: 20080207
  Transmission Date: 20080703
  Serious: Yes (Other)
  Sender: FDA-Public Use
  Company Number: 2007PV033261

PATIENT
  Age: 81 Year
  Sex: Female

DRUGS (7)
  1. SYMLIN [Suspect]
     Indication: TYPE 2 DIABETES MELLITUS
     Dosage: 60 MCG; TID; SC, 60 MCG; TID; SC, 60 MCG; TID; SC
     Route: 058
     Dates: start: 20051105, end: 20051108
  2. SYMLIN [Suspect]
     Indication: TYPE 2 DIABETES MELLITUS
     Dosage: 60 MCG; TID; SC, 60 MCG; TID; SC, 60 MCG; TID; SC
     Route: 058
     Dates: start: 20060111, end: 20070101
  3. SYMLIN [Suspect]
     Indication: TYPE 2 DIABETES MELLITUS
     Dosage: 60 MCG; TID; SC, 60 MCG; TID; SC, 60 MCG; TID; SC
     Route: 058
     Dates: start: 20070607
  4. HUMALOG [Concomitant]
  5. LANTUS [Concomitant]
  6. MECLIZINE [Concomitant]
  7. ANTIHYPERTENSIVES [Concomitant]

REACTIONS (9)
  - DEAFNESS UNILATERAL [None]
  - DIARRHOEA [None]
  - DIZZINESS [None]
  - MENIERE'S DISEASE [None]
  - NAUSEA [None]
  - ORAL INTAKE REDUCED [None]
  - VERTIGO [None]
  - VOMITING [None]
  - WRONG DRUG ADMINISTERED [None]
